FAERS Safety Report 18639979 (Version 1)
Quarter: 2020Q4

REPORT INFORMATION
  Report Type: Spontaneous
  Country: US (occurrence: US)
  Receive Date: 20201220
  Receipt Date: 20201220
  Transmission Date: 20210114
  Serious: Yes (Hospitalization, Other)
  Sender: FDA-Public Use
  Company Number: US-PACIRA-202000296

PATIENT
  Age: 54 Year
  Sex: Male

DRUGS (2)
  1. EXPAREL [Suspect]
     Active Substance: BUPIVACAINE
     Indication: NERVE BLOCK
     Dosage: 10 ML ADMIXED WITH 10 ML 0.25% BUPIVACAINE
     Dates: start: 20200706
  2. BUPIVACAINE 0.25% [Suspect]
     Active Substance: BUPIVACAINE
     Indication: NERVE BLOCK
     Dosage: 10 ML ADMIXED WITH 10 ML OF EXPAREL

REACTIONS (16)
  - Apnoea [Unknown]
  - Chest pain [Not Recovered/Not Resolved]
  - Pyrexia [Unknown]
  - Lethargy [Not Recovered/Not Resolved]
  - Fatigue [Not Recovered/Not Resolved]
  - Hypoaesthesia [Recovered/Resolved]
  - Syncope [Recovered/Resolved]
  - Burning sensation [Unknown]
  - Rash [Unknown]
  - Dizziness [Unknown]
  - Unresponsive to stimuli [Recovered/Resolved]
  - Bradycardia [Recovered/Resolved]
  - Injection site discomfort [Unknown]
  - Loss of consciousness [Recovered/Resolved]
  - Nausea [Unknown]
  - Feeling hot [Unknown]

NARRATIVE: CASE EVENT DATE: 20200706
